FAERS Safety Report 12413953 (Version 2)
Quarter: 2016Q2

REPORT INFORMATION
  Report Type: Spontaneous
  Country: US (occurrence: US)
  Receive Date: 20160527
  Receipt Date: 20160605
  Transmission Date: 20160815
  Serious: No
  Sender: FDA-Public Use
  Company Number: US-009507513-1605USA012707

PATIENT
  Age: 57 Year
  Sex: Male

DRUGS (4)
  1. LYRICA [Concomitant]
     Active Substance: PREGABALIN
  2. BELSOMRA [Suspect]
     Active Substance: SUVOREXANT
     Dosage: 20 MG, QD
     Route: 048
     Dates: start: 201605
  3. BELSOMRA [Suspect]
     Active Substance: SUVOREXANT
     Indication: INSOMNIA
     Dosage: 10 MG, QPM (ONCE AT NIGHT)
     Route: 048
     Dates: start: 20160524, end: 201605
  4. BELSOMRA [Suspect]
     Active Substance: SUVOREXANT
     Dosage: 10 MG DOSE AT NIGHT
     Route: 048
     Dates: start: 20160526, end: 20160526

REACTIONS (1)
  - Drug ineffective [Not Recovered/Not Resolved]

NARRATIVE: CASE EVENT DATE: 20160524
